FAERS Safety Report 6400848-8 (Version None)
Quarter: 2009Q4

REPORT INFORMATION
  Report Type: 
  Country: None (occurrence: None)
  Receive Date: 20091009
  Receipt Date: 20090625
  Transmission Date: 20100525
  Serious: Yes (Other)
  Sender: FDA-Public Use
  Company Number: 2009SP014031

PATIENT
  Age: 54 Year
  Sex: Female

DRUGS (5)
  1. TEMODAR [Suspect]
     Indication: ANAPLASTIC ASTROCYTOMA
     Dosage: 120 MG; QD; PO
     Route: 048
     Dates: start: 20090406, end: 20090430
  2. INTAL [Concomitant]
  3. KEPPRA [Concomitant]
  4. DECADRON [Concomitant]
  5. PEPCID [Concomitant]

REACTIONS (1)
  - APLASTIC ANAEMIA [None]
